FAERS Safety Report 12833913 (Version 7)
Quarter: 2018Q3

REPORT INFORMATION
  Report Type: Spontaneous
  Country: DE (occurrence: DE)
  Receive Date: 20161010
  Receipt Date: 20180926
  Transmission Date: 20181010
  Serious: Yes (Other)
  Sender: FDA-Public Use
  Company Number: DE-GILEAD-2016-0231518

PATIENT
  Age: 38 Year
  Sex: Male

DRUGS (5)
  1. DESCOVY [Suspect]
     Active Substance: EMTRICITABINE\TENOFOVIR ALAFENAMIDE FUMARATE
     Indication: HIV INFECTION
     Dosage: UNK
     Route: 065
     Dates: start: 20160728
  2. TIVICAY [Suspect]
     Active Substance: DOLUTEGRAVIR SODIUM
     Dosage: UNK
     Route: 065
  3. TIVICAY [Suspect]
     Active Substance: DOLUTEGRAVIR SODIUM
     Dosage: UNK
     Route: 065
  4. TIVICAY [Suspect]
     Active Substance: DOLUTEGRAVIR SODIUM
     Indication: HIV INFECTION
     Dosage: UNK
     Route: 065
     Dates: start: 20160728
  5. TIVICAY [Suspect]
     Active Substance: DOLUTEGRAVIR SODIUM
     Dosage: UNK
     Route: 065

REACTIONS (17)
  - Panic attack [Unknown]
  - Abnormal dreams [Not Recovered/Not Resolved]
  - Hyperhidrosis [Unknown]
  - Tooth infection [Not Recovered/Not Resolved]
  - Palpitations [Recovering/Resolving]
  - Restlessness [Unknown]
  - Tachycardia [Recovering/Resolving]
  - Haemorrhagic diathesis [Not Recovered/Not Resolved]
  - Agitation [Recovering/Resolving]
  - Presyncope [Unknown]
  - Dyspepsia [Unknown]
  - Intentional product misuse [Unknown]
  - Hyperacusis [Not Recovered/Not Resolved]
  - Temperature intolerance [Recovering/Resolving]
  - Cardiovascular disorder [Unknown]
  - Hyperventilation [Unknown]
  - Drug interaction [Unknown]

NARRATIVE: CASE EVENT DATE: 2016
